FAERS Safety Report 7138571-7 (Version None)
Quarter: 2010Q4

REPORT INFORMATION
  Report Type: 
  Country: None (occurrence: None)
  Receive Date: 20101206
  Receipt Date: 20101122
  Transmission Date: 20110411
  Serious: No
  Sender: FDA-Public Use
  Company Number: US-ROXANE LABORATORIES, INC.-2010-RO-01542RO

PATIENT
  Sex: Female

DRUGS (1)
  1. PREDNISONE [Suspect]

REACTIONS (1)
  - BLOOD GLUCOSE INCREASED [None]
